FAERS Safety Report 8747133 (Version 3)
Quarter: 2012Q4

REPORT INFORMATION
  Report Type: 
  Country: AU (occurrence: AU)
  Receive Date: 20120827
  Receipt Date: 20120920
  Transmission Date: 20130627
  Serious: Yes (Death)
  Sender: FDA-Public Use
  Company Number: AU-B.I. PHARMACEUTICALS,INC./RIDGEFIELD-2012-AU-01516AU

PATIENT
  Age: 76 Year
  Sex: Male
  Weight: 58 kg

DRUGS (10)
  1. PRADAXA [Suspect]
     Indication: CEREBROVASCULAR ACCIDENT PROPHYLAXIS
     Dosage: 220 mg
     Dates: start: 20120404
  2. PRADAXA [Suspect]
     Indication: ATRIAL FIBRILLATION
  3. ASTRIX [Concomitant]
     Dosage: 100 mg
  4. CALTRATE WITH VITAMIN D [Concomitant]
     Dosage: 1500mg/5mcg
  5. COVERSYL PLUS [Concomitant]
     Dosage: 5mg/1.25mg
  6. MINIPRESS [Concomitant]
     Dosage: 2 mg
  7. PHYSIOTENS [Concomitant]
     Dosage: 0.4 mg
  8. SOMAC [Concomitant]
     Dosage: 40 mg
  9. VYTORIN [Concomitant]
     Dosage: 10mg/40mg
  10. ZAN-EXTRA [Concomitant]
     Dosage: 10mg/10mg

REACTIONS (4)
  - Haemorrhage intracranial [Fatal]
  - Fall [Fatal]
  - Swelling face [Unknown]
  - Anaemia [Unknown]
